FAERS Safety Report 12323809 (Version 7)
Quarter: 2019Q4

REPORT INFORMATION
  Report Type: Spontaneous
  Country: US (occurrence: US)
  Receive Date: 20160502
  Receipt Date: 20191209
  Transmission Date: 20200122
  Serious: Yes (Hospitalization, Other)
  Sender: FDA-Public Use
  Company Number: US-PFIZER INC-2016234588

PATIENT
  Age: 81 Year
  Sex: Female
  Weight: 91 kg

DRUGS (10)
  1. CELEBREX [Suspect]
     Active Substance: CELECOXIB
     Indication: PAIN
     Dosage: 200 MG, UNK
     Route: 048
  2. TYLENOL ARTHRITIS PAIN [Concomitant]
     Active Substance: ACETAMINOPHEN
     Dosage: UNK
  3. CELEBREX [Suspect]
     Active Substance: CELECOXIB
     Indication: INFLAMMATION
     Dosage: 100 MG, AS NEEDED
     Route: 048
  4. LUMIGAN [Concomitant]
     Active Substance: BIMATOPROST
     Indication: BLINDNESS
     Dosage: 2 GTT, 1X/DAY (ONE DROP EACH EYE EVERY EVENING)
     Route: 047
  5. TRAMADOL. [Concomitant]
     Active Substance: TRAMADOL
     Indication: PAIN
     Dosage: UNK
  6. CELEBREX [Suspect]
     Active Substance: CELECOXIB
     Indication: PAIN IN EXTREMITY
     Dosage: 200 MG (TAKING TWO 100 MG)
     Route: 048
  7. CELEBREX [Suspect]
     Active Substance: CELECOXIB
     Dosage: 200 MG, DAILY (TAKING TWO 100 MG)
     Route: 048
  8. CELEBREX [Suspect]
     Active Substance: CELECOXIB
     Indication: ARTHRALGIA
     Dosage: 200 MG, UNK
     Route: 048
  9. TIMOLOL. [Concomitant]
     Active Substance: TIMOLOL
     Indication: BLINDNESS
     Dosage: 2 GTT, 1X/DAY (ONE DROP EACH EYE EVERY MORNING)
     Route: 047
  10. CELEBREX [Suspect]
     Active Substance: CELECOXIB
     Indication: ARTHRITIS
     Dosage: 100 MG, UNK
     Route: 048
     Dates: start: 2000

REACTIONS (25)
  - Glaucoma [Unknown]
  - Blindness [Not Recovered/Not Resolved]
  - Cataract [Unknown]
  - Breast cancer [Recovering/Resolving]
  - Product dose omission [Unknown]
  - Urinary tract disorder [Unknown]
  - Hypertonic bladder [Unknown]
  - Incontinence [Unknown]
  - Pruritus [Unknown]
  - Fall [Unknown]
  - Finger deformity [Unknown]
  - Visual impairment [Unknown]
  - Diverticulum [Unknown]
  - Diverticulitis [Unknown]
  - Visual acuity reduced [Unknown]
  - Body height decreased [Unknown]
  - Haemorrhage [Unknown]
  - Joint stiffness [Unknown]
  - Crying [Unknown]
  - Weight decreased [Unknown]
  - Dizziness [Unknown]
  - Head injury [Unknown]
  - Hypoacusis [Not Recovered/Not Resolved]
  - Loss of personal independence in daily activities [Not Recovered/Not Resolved]
  - Malaise [Unknown]

NARRATIVE: CASE EVENT DATE: 201702
